FAERS Safety Report 9267159 (Version 1)
Quarter: 2013Q2

REPORT INFORMATION
  Report Type: Spontaneous
  Country: US (occurrence: US)
  Receive Date: 20130502
  Receipt Date: 20130502
  Transmission Date: 20140414
  Serious: No
  Sender: FDA-Public Use
  Company Number: US-PFIZER INC-2013134725

PATIENT
  Age: 34 Year
  Sex: Female
  Weight: 61.24 kg

DRUGS (2)
  1. MOTRIN IB [Suspect]
     Indication: HEADACHE
     Dosage: 2 CAPLETS, ONCE EVERY 6 HOURS
     Route: 048
  2. MOTRIN IB [Suspect]
     Indication: PAIN

REACTIONS (3)
  - Abdominal distension [Recovered/Resolved]
  - Abdominal discomfort [Recovered/Resolved]
  - Gastrointestinal sounds abnormal [Recovered/Resolved]
